FAERS Safety Report 9377477 (Version 3)
Quarter: 2013Q3

REPORT INFORMATION
  Report Type: Spontaneous
  Country: US (occurrence: US)
  Receive Date: 20130701
  Receipt Date: 20130816
  Transmission Date: 20140515
  Serious: Yes (Other)
  Sender: FDA-Public Use
  Company Number: US-PFIZER INC-2013190897

PATIENT
  Age: 58 Year
  Sex: Female
  Weight: 94.79 kg

DRUGS (4)
  1. DETROL LA [Suspect]
     Indication: URINARY INCONTINENCE
     Dosage: 4 MG, 1X/DAY
  2. RELPAX [Suspect]
     Indication: MIGRAINE
     Dosage: 40 MG, 1X/DAY
  3. PREMARIN [Suspect]
     Indication: HYSTERECTOMY
     Dosage: 0.9 MG, 1X/DAY
  4. ZOLOFT [Suspect]
     Indication: DEPRESSION
     Dosage: 200 MG, 1X/DAY

REACTIONS (1)
  - Pharyngitis streptococcal [Unknown]
